FAERS Safety Report 21298984 (Version 1)
Quarter: 2022Q3

REPORT INFORMATION
  Report Type: Spontaneous
  Country: US (occurrence: US)
  Receive Date: 20220906
  Receipt Date: 20220906
  Transmission Date: 20221027
  Serious: No
  Sender: FDA-Public Use
  Company Number: US-PFIZER INC-PV202200054792

PATIENT
  Age: 17 Year
  Sex: Female

DRUGS (2)
  1. DEPO-PROVERA [Suspect]
     Active Substance: MEDROXYPROGESTERONE ACETATE
     Dosage: UNK
  2. DUPIXENT [Suspect]
     Active Substance: DUPILUMAB
     Indication: Dermatitis atopic
     Dosage: 200 MG, WEEKLY (QOW)
     Route: 058
     Dates: start: 202202

REACTIONS (2)
  - Weight increased [Unknown]
  - Weight fluctuation [Unknown]

NARRATIVE: CASE EVENT DATE: 20220101
